FAERS Safety Report 24563905 (Version 1)
Quarter: 2024Q4

REPORT INFORMATION
  Report Type: Spontaneous
  Country: AT (occurrence: AT)
  Receive Date: 20241030
  Receipt Date: 20241030
  Transmission Date: 20250115
  Serious: Yes (Hospitalization, Other)
  Sender: TAKEDA
  Company Number: AT-TAKEDA-2024TUS107161

PATIENT
  Age: 51 Year
  Sex: Female

DRUGS (1)
  1. MARIBAVIR [Suspect]
     Active Substance: MARIBAVIR
     Indication: Cytomegalovirus viraemia
     Dosage: 200 MILLIGRAM, BID
     Route: 065
     Dates: start: 20240614, end: 20240712

REACTIONS (3)
  - Constipation [Recovered/Resolved]
  - Diverticulitis [Recovered/Resolved]
  - Gastroenteritis Escherichia coli [Recovered/Resolved]
